FAERS Safety Report 25532828 (Version 2)
Quarter: 2025Q3

REPORT INFORMATION
  Report Type: Spontaneous
  Country: US (occurrence: US)
  Receive Date: 20250709
  Receipt Date: 20250711
  Transmission Date: 20251020
  Serious: Yes (Hospitalization)
  Sender: Unknown Manufacturer
  Company Number: US-STRIDES ARCOLAB LIMITED-2025OS000013

PATIENT
  Sex: Male

DRUGS (2)
  1. MIDAZOLAM [Interacting]
     Active Substance: MIDAZOLAM
     Indication: Sedative therapy
     Route: 065
  2. PENTOBARBITAL [Concomitant]
     Active Substance: PENTOBARBITAL
     Indication: Sedative therapy
     Route: 065

REACTIONS (2)
  - Drug-disease interaction [Unknown]
  - Sedation complication [Unknown]
